FAERS Safety Report 6994176-X (Version None)
Quarter: 2010Q3

REPORT INFORMATION
  Report Type: 
  Country: None (occurrence: None)
  Receive Date: 20100917
  Receipt Date: 20100115
  Transmission Date: 20110219
  Serious: Yes (Hospitalization)
  Sender: FDA-Public Use
  Company Number: US-ASTRAZENECA-2009SE21088

PATIENT
  Age: 36 Year
  Sex: Female
  Weight: 99.8 kg

DRUGS (11)
  1. SEROQUEL [Suspect]
     Indication: SCHIZOAFFECTIVE DISORDER
     Route: 048
     Dates: start: 20060101
  2. SEROQUEL [Suspect]
     Indication: BIPOLAR DISORDER
     Route: 048
     Dates: start: 20060101
  3. SEROQUEL [Suspect]
     Route: 048
     Dates: start: 20060101
  4. SEROQUEL [Suspect]
     Route: 048
     Dates: start: 20060101
  5. ABILIFY [Concomitant]
     Route: 048
     Dates: start: 20071121
  6. RISPERDAL [Concomitant]
  7. ZYPREXA [Concomitant]
  8. DEPAKOTE [Concomitant]
     Dosage: 500 TO 1000 MG
     Route: 048
     Dates: start: 20071122
  9. CYMBALTA [Concomitant]
  10. TRAZODONE HCL [Concomitant]
     Route: 048
     Dates: start: 20071121
  11. ZOLOFT [Concomitant]

REACTIONS (4)
  - BLOOD CHOLESTEROL INCREASED [None]
  - HYPERLIPIDAEMIA [None]
  - SUICIDAL BEHAVIOUR [None]
  - TYPE 2 DIABETES MELLITUS [None]
